FAERS Safety Report 5620216-6 (Version None)
Quarter: 2008Q1

REPORT INFORMATION
  Report Type: 
  Country: None (occurrence: None)
  Receive Date: 20080208
  Receipt Date: 20080128
  Transmission Date: 20080703
  Serious: Yes (Hospitalization)
  Sender: FDA-Public Use
  Company Number: A0701048C

PATIENT
  Age: 63 Year
  Sex: Female
  Weight: 73.6 kg

DRUGS (2)
  1. TOPOTECAN [Suspect]
     Indication: NON-SMALL CELL LUNG CANCER
     Route: 048
     Dates: start: 20071210, end: 20071221
  2. RADIATION [Suspect]
     Dates: start: 20071210, end: 20071221

REACTIONS (4)
  - ANAEMIA [None]
  - DYSPNOEA [None]
  - HYPERGLYCAEMIA [None]
  - LETHARGY [None]
